FAERS Safety Report 6240128-7 (Version None)
Quarter: 2009Q2

REPORT INFORMATION
  Report Type: 
  Country: None (occurrence: None)
  Receive Date: 20090618
  Receipt Date: 20090618
  Transmission Date: 20091009
  Serious: No
  Sender: FDA-Public Use
  Company Number: None

PATIENT
  Sex: Male
  Weight: 90.7194 kg

DRUGS (1)
  1. LOVAZA [Suspect]
     Indication: BLOOD CHOLESTEROL
     Dosage: 1000MG QID PO
     Route: 048

REACTIONS (2)
  - ARTHRITIS [None]
  - RHINITIS [None]
